FAERS Safety Report 26062006 (Version 1)
Quarter: 2025Q4

REPORT INFORMATION
  Report Type: Spontaneous
  Country: JP (occurrence: JP)
  Receive Date: 20251119
  Receipt Date: 20251119
  Transmission Date: 20260118
  Serious: Yes (Other)
  Sender: SANDOZ
  Company Number: JP-SANDOZ INC.-SDZ2025JP085127

PATIENT
  Sex: Female

DRUGS (1)
  1. XYLOCAINE [Suspect]
     Active Substance: LIDOCAINE HYDROCHLORIDE
     Indication: Anaesthesia procedure
     Dosage: UNK
     Route: 065

REACTIONS (1)
  - Anaphylactic shock [Unknown]
